FAERS Safety Report 13662249 (Version 1)
Quarter: 2017Q2

REPORT INFORMATION
  Report Type: Report from Study
  Country: JP (occurrence: JP)
  Receive Date: 20170617
  Receipt Date: 20170617
  Transmission Date: 20170830
  Serious: Yes (Hospitalization, Other)
  Sender: FDA-Public Use
  Company Number: JP-AMGEN-JPNCT2017090368

PATIENT
  Age: 66 Year
  Sex: Female
  Weight: 65 kg

DRUGS (23)
  1. DARBEPOETIN ALFA [Suspect]
     Active Substance: DARBEPOETIN ALFA
     Indication: CHRONIC KIDNEY DISEASE
     Dosage: 30 MUG, Q3WK
     Route: 058
     Dates: start: 20160617, end: 20160708
  2. DARBEPOETIN ALFA [Suspect]
     Active Substance: DARBEPOETIN ALFA
     Dosage: 60 MUG, QD
     Route: 058
     Dates: start: 20160902, end: 20160902
  3. NIFEDIPINE. [Suspect]
     Active Substance: NIFEDIPINE
     Indication: HYPERTENSION
     Dosage: 20 MG, QD
     Route: 048
     Dates: start: 20160708
  4. FEBURIC [Suspect]
     Active Substance: FEBUXOSTAT
     Indication: HYPERURICAEMIA
     Dosage: 10 MG, QD
     Route: 048
     Dates: start: 20160708
  5. BAYASPIRIN [Suspect]
     Active Substance: ASPIRIN
     Indication: NEPHROTIC SYNDROME
     Dosage: 100 MG, QD
     Route: 048
  6. ETIZOLAM [Suspect]
     Active Substance: ETIZOLAM
     Indication: ANXIETY DISORDER
     Dosage: 0.5 MG, QD
     Route: 065
  7. DARBEPOETIN ALFA [Suspect]
     Active Substance: DARBEPOETIN ALFA
     Dosage: 60 MUG, QD
     Route: 058
     Dates: start: 20160927
  8. DARBEPOETIN ALFA [Suspect]
     Active Substance: DARBEPOETIN ALFA
     Dosage: 40 MUG, QD
     Route: 058
     Dates: start: 20160805, end: 20160805
  9. LANSOPRAZOLE. [Suspect]
     Active Substance: LANSOPRAZOLE
     Indication: GASTRIC ULCER
     Dosage: 15 MG, QD
     Route: 048
  10. GLUFAST [Suspect]
     Active Substance: MITIGLINIDE
     Indication: DIABETES MELLITUS
     Dosage: 10 MG, QD
     Route: 048
     Dates: start: 20160902
  11. METHYCOBAL [Suspect]
     Active Substance: METHYLCOBALAMIN
     Indication: NEUROPATHY PERIPHERAL
     Dosage: 500 MUG, TID
     Route: 048
  12. HUMALOG [Suspect]
     Active Substance: INSULIN LISPRO
     Indication: DIABETES MELLITUS
     Dosage: 8 IU, TID
     Route: 058
  13. TRESIBA [Suspect]
     Active Substance: INSULIN DEGLUDEC
     Indication: DIABETES MELLITUS
     Dosage: 30 IU, QD
     Route: 058
     Dates: start: 20160708
  14. METOPROLOL TARTRATE. [Suspect]
     Active Substance: METOPROLOL TARTRATE
     Indication: HYPERTENSION
     Dosage: 20 MG, BID
     Route: 048
  15. PITAVASTATIN CA [Suspect]
     Active Substance: PITAVASTATIN CALCIUM
     Indication: DYSLIPIDAEMIA
     Dosage: 2 MG, QD
     Route: 048
  16. MAGNESIUM OXIDE. [Suspect]
     Active Substance: MAGNESIUM OXIDE
     Indication: CONSTIPATION
     Dosage: 330 MG, TID
     Route: 048
  17. ARGAMATE [Suspect]
     Active Substance: CALCIUM POLYSTYRENE SULFONATE
     Indication: HYPERKALAEMIA
     Dosage: 25 G, TID
     Route: 048
     Dates: start: 20160923
  18. CANDESARTAN. [Suspect]
     Active Substance: CANDESARTAN
     Indication: HYPERTENSION
     Dosage: 8 MG, QD
     Route: 048
     Dates: start: 20160708
  19. DOXAZOSIN [Suspect]
     Active Substance: DOXAZOSIN\DOXAZOSIN MESYLATE
     Indication: HYPERTENSION
     Dosage: 4 MG, QD
     Route: 048
  20. TRAZENTA [Suspect]
     Active Substance: LINAGLIPTIN
     Indication: DIABETES MELLITUS
     Dosage: 5 MG, QD
     Route: 048
     Dates: start: 20161014
  21. IFENPRODIL TARTRATE [Suspect]
     Active Substance: IFENPRODIL TARTRATE
     Indication: CEREBRAL INFARCTION
     Dosage: 20 MG, TID
     Route: 048
  22. FUROSEMIDE. [Suspect]
     Active Substance: FUROSEMIDE
     Indication: OEDEMA DUE TO RENAL DISEASE
     Dosage: 40 MG, QD
     Route: 048
     Dates: start: 20160129
  23. FERROSTEC [Suspect]
     Active Substance: SODIUM FERROUS CITRATE
     Indication: IRON DEFICIENCY ANAEMIA
     Dosage: 50 MG, QD
     Route: 048
     Dates: start: 20170203

REACTIONS (4)
  - Arteriovenous shunt operation [Recovering/Resolving]
  - Sudden hearing loss [Recovered/Resolved]
  - Hyperkalaemia [Recovering/Resolving]
  - Hypotension [Recovered/Resolved]

NARRATIVE: CASE EVENT DATE: 20160709
